FAERS Safety Report 4927073-1 (Version None)
Quarter: 2006Q1

REPORT INFORMATION
  Report Type: 
  Country: None (occurrence: None)
  Receive Date: 20060228
  Receipt Date: 20051018
  Transmission Date: 20060701
  Serious: Yes (Other)
  Sender: FDA-Public Use
  Company Number: US-GLAXOSMITHKLINE-A0578644A

PATIENT
  Age: 45 Year
  Sex: Female
  Weight: 61.4 kg

DRUGS (2)
  1. LAMICTAL [Suspect]
     Indication: BIPOLAR DISORDER
     Route: 048
     Dates: start: 20050708, end: 20051014
  2. WELLBUTRIN XL [Concomitant]
     Route: 048

REACTIONS (2)
  - DRY SKIN [None]
  - RASH GENERALISED [None]
